FAERS Safety Report 19119771 (Version 2)
Quarter: 2021Q2

REPORT INFORMATION
  Report Type: Spontaneous
  Country: US (occurrence: US)
  Receive Date: 20210412
  Receipt Date: 20210430
  Transmission Date: 20210717
  Serious: Yes (Other)
  Sender: FDA-Public Use
  Company Number: US-SA-2021SA118518

PATIENT
  Age: 53 Year
  Sex: Female

DRUGS (1)
  1. DUPIXENT [Suspect]
     Active Substance: DUPILUMAB
     Indication: DERMATITIS ATOPIC
     Dosage: 300 MG, QOW
     Route: 065
     Dates: start: 20210331, end: 20210406

REACTIONS (7)
  - Syncope [Not Recovered/Not Resolved]
  - Dizziness [Recovered/Resolved]
  - Skin burning sensation [Not Recovered/Not Resolved]
  - Urticaria [Recovered/Resolved]
  - Pruritus [Not Recovered/Not Resolved]
  - Rash [Not Recovered/Not Resolved]
  - Serum sickness [Not Recovered/Not Resolved]

NARRATIVE: CASE EVENT DATE: 20210406
